FAERS Safety Report 11364755 (Version 1)
Quarter: 2015Q3

REPORT INFORMATION
  Report Type: Report from Study
  Country: US (occurrence: US)
  Receive Date: 20150811
  Receipt Date: 20150811
  Transmission Date: 20151125
  Serious: Yes (Death, Hospitalization)
  Sender: FDA-Public Use
  Company Number: US-JNJFOC-20150717636

PATIENT
  Age: 79 Year
  Sex: Female
  Weight: 61 kg

DRUGS (3)
  1. IMBRUVICA [Suspect]
     Active Substance: IBRUTINIB
     Indication: NON-HODGKIN^S LYMPHOMA
     Route: 048
     Dates: start: 20150630, end: 20150710
  2. PRESERVISION [Concomitant]
     Active Substance: MINERALS\VITAMINS
  3. PROBIOTIC [Concomitant]
     Active Substance: PROBIOTICS NOS

REACTIONS (6)
  - Acute respiratory distress syndrome [Fatal]
  - Pneumonia [Unknown]
  - Atrial fibrillation [Not Recovered/Not Resolved]
  - Pleural effusion [Unknown]
  - Off label use [Unknown]
  - Colitis [Unknown]

NARRATIVE: CASE EVENT DATE: 20150630
